FAERS Safety Report 17249896 (Version 7)
Quarter: 2020Q2

REPORT INFORMATION
  Report Type: Report from Study
  Country: US (occurrence: US)
  Receive Date: 20200109
  Receipt Date: 20200427
  Transmission Date: 20200713
  Serious: Yes (Hospitalization)
  Sender: FDA-Public Use
  Company Number: US-ROCHE-2515336

PATIENT
  Age: 68 Year
  Sex: Male

DRUGS (23)
  1. ATEZOLIZUMAB. [Suspect]
     Active Substance: ATEZOLIZUMAB
     Dosage: SUBSEQUENT DOSES ON 30-JAN-2020 OF  C1D1, 13/FEB/2020 OF C6D15, 27/FEB/2020 OF C7D1, 12/MAR/2020 OF
     Route: 042
  2. DIAZEPAM. [Concomitant]
     Active Substance: DIAZEPAM
     Route: 065
     Dates: start: 20191114
  3. ONDANSETRON [Concomitant]
     Active Substance: ONDANSETRON
     Route: 065
     Dates: start: 20191212, end: 20191212
  4. CPI-444 (ADENOSINE-A2A RECEPTOR ANTAGONIST) [Suspect]
     Active Substance: CIFORADENANT
     Indication: HORMONE-REFRACTORY PROSTATE CANCER
     Dosage: SUBSEQUENT DOSES AT 06/SEP/2019 (C1D1), 03/OCT/2019 (C2D1), 31/OCT/2019 (C3D1), 26/NOV/2019 (C4D1) A
     Route: 048
     Dates: start: 20190906
  5. LEVOTHYROXINE. [Concomitant]
     Active Substance: LEVOTHYROXINE
     Route: 065
     Dates: start: 20170117
  6. ATORVASTATIN [Concomitant]
     Active Substance: ATORVASTATIN
     Route: 065
     Dates: start: 20181030
  7. OXYBUTYNIN. [Concomitant]
     Active Substance: OXYBUTYNIN CHLORIDE
     Route: 065
     Dates: start: 20191114
  8. PHENAZOPYRIDINE. [Concomitant]
     Active Substance: PHENAZOPYRIDINE
     Route: 065
     Dates: start: 20191212, end: 20191212
  9. LISINOPRIL. [Concomitant]
     Active Substance: LISINOPRIL
  10. LEUPROLIDE ACETATE. [Concomitant]
     Active Substance: LEUPROLIDE ACETATE
     Route: 065
     Dates: start: 200902
  11. METOPROLOL SUCCINATE. [Concomitant]
     Active Substance: METOPROLOL SUCCINATE
     Route: 065
  12. CEFAZOLIN [Concomitant]
     Active Substance: CEFAZOLIN
     Route: 065
     Dates: start: 20191202, end: 20191212
  13. FENTANYL. [Concomitant]
     Active Substance: FENTANYL
     Route: 065
     Dates: start: 20191212, end: 20191212
  14. PROPOFOL. [Concomitant]
     Active Substance: PROPOFOL
     Route: 065
     Dates: start: 20191212, end: 20191212
  15. SUCCINYLCHOLINE BROMIDE [Concomitant]
     Active Substance: SUXAMETHONIUM BROMIDE
     Route: 065
     Dates: start: 20191212, end: 20191212
  16. MIDAZOLAM. [Concomitant]
     Active Substance: MIDAZOLAM
     Route: 065
     Dates: start: 20191212, end: 20191212
  17. PHENYLEPHRINE [Concomitant]
     Active Substance: PHENYLEPHRINE HYDROCHLORIDE
     Route: 065
     Dates: start: 20191212, end: 20191212
  18. TAMSULOSIN [Concomitant]
     Active Substance: TAMSULOSIN
     Route: 065
     Dates: start: 20191114
  19. EPHEDRINE. [Concomitant]
     Active Substance: EPHEDRINE
     Route: 065
     Dates: start: 20191212, end: 20191212
  20. ATEZOLIZUMAB. [Suspect]
     Active Substance: ATEZOLIZUMAB
     Indication: HORMONE-REFRACTORY PROSTATE CANCER
     Dosage: ON 19/SEP/2019, 03/OCT/2019, 17/OCT/2019, 31/OCT/2019, 14/NOV/2019, 26/NOV/2019,10/DEC/2019, 03/JAN
     Route: 042
     Dates: start: 20190906, end: 20190906
  21. CPI-444 (ADENOSINE-A2A RECEPTOR ANTAGONIST) [Suspect]
     Active Substance: CIFORADENANT
     Dosage: SUBSEQUENT DOSES ON 30/JAN/2020 OF C6D1, 27/FEB/2020 OF C7D1, 26/MAR/2020 OF C8D1
     Route: 048
  22. APIXABAN [Concomitant]
     Active Substance: APIXABAN
     Route: 065
     Dates: start: 20170202
  23. ACETAMINOPHEN. [Concomitant]
     Active Substance: ACETAMINOPHEN
     Route: 065
     Dates: start: 20190906

REACTIONS (1)
  - Ataxia [Recovered/Resolved]

NARRATIVE: CASE EVENT DATE: 20191226
